FAERS Safety Report 20737064 (Version 1)
Quarter: 2022Q2

REPORT INFORMATION
  Report Type: Spontaneous
  Country: US (occurrence: US)
  Receive Date: 20220421
  Receipt Date: 20220421
  Transmission Date: 20220721
  Serious: No
  Sender: FDA-Public Use
  Company Number: US-PFIZER INC-2021703182

PATIENT
  Age: 65 Year
  Sex: Female
  Weight: 58.6 kg

DRUGS (1)
  1. PREGABALIN [Suspect]
     Active Substance: PREGABALIN
     Indication: Complex regional pain syndrome
     Dosage: 225 MG, DAILY (75 MG, 1 CAPSULE IN THE MORNING, 2 CAPSULES IN THE EVENING)
     Route: 048
     Dates: start: 20210512, end: 20210616

REACTIONS (2)
  - Off label use [Unknown]
  - Drug ineffective for unapproved indication [Unknown]

NARRATIVE: CASE EVENT DATE: 20210512
